FAERS Safety Report 4690729-2 (Version None)
Quarter: 2005Q2

REPORT INFORMATION
  Report Type: 
  Country: None (occurrence: None)
  Receive Date: 20050615
  Receipt Date: 20050603
  Transmission Date: 20051028
  Serious: Yes (Hospitalization)
  Sender: FDA-Public Use
  Company Number: LB-MERCK-0506USA00684

PATIENT
  Age: 63 Year

DRUGS (4)
  1. COZAAR [Suspect]
     Route: 048
  2. FLUDEX [Concomitant]
     Route: 065
  3. ASPIRIN [Concomitant]
     Route: 065
  4. STATIN (UNSPECIFIED) [Concomitant]
     Route: 065

REACTIONS (1)
  - CARDIAC DISORDER [None]
